FAERS Safety Report 19422314 (Version 1)
Quarter: 2021Q2

REPORT INFORMATION
  Report Type: Spontaneous
  Country: US (occurrence: US)
  Receive Date: 20210615
  Receipt Date: 20210615
  Transmission Date: 20210717
  Serious: No
  Sender: FDA-Public Use
  Company Number: None

PATIENT
  Age: 24 Year
  Sex: Male
  Weight: 90.72 kg

DRUGS (6)
  1. DEXTROAMPHET SACCHARAT, AMPHET ASPARTATE, DEXTROAMPHET SULFATE AND AMPHET SULFAT [Suspect]
     Active Substance: AMPHETAMINE ASPARTATE\AMPHETAMINE SULFATE\DEXTROAMPHETAMINE SACCHARATE\DEXTROAMPHETAMINE SULFATE
     Indication: ATTENTION DEFICIT HYPERACTIVITY DISORDER
     Dosage: ?          QUANTITY:60 CAPSULES PER MONTH?
     Route: 048
     Dates: start: 2019, end: 202106
  2. LAMICTAL [Concomitant]
     Active Substance: LAMOTRIGINE
  3. VITAMIN D [Concomitant]
     Active Substance: VITAMIN D NOS
  4. KLONOPIN [Concomitant]
     Active Substance: CLONAZEPAM
  5. FLUCONAZOLE. [Concomitant]
     Active Substance: FLUCONAZOLE
  6. ADDERALL [Concomitant]
     Active Substance: AMPHETAMINE ASPARTATE\AMPHETAMINE SULFATE\DEXTROAMPHETAMINE SACCHARATE\DEXTROAMPHETAMINE SULFATE

REACTIONS (13)
  - Product supply issue [None]
  - Emotional disorder [None]
  - Condition aggravated [None]
  - Product substitution issue [None]
  - Paradoxical drug reaction [None]
  - Depression [None]
  - Product quality issue [None]
  - Nausea [None]
  - Therapeutic response changed [None]
  - Therapeutic product effect incomplete [None]
  - Hot flush [None]
  - Attention deficit hyperactivity disorder [None]
  - Drug ineffective [None]

NARRATIVE: CASE EVENT DATE: 202106
